FAERS Safety Report 8085281-8 (Version None)
Quarter: 2012Q1

REPORT INFORMATION
  Report Type: 
  Country: None (occurrence: None)
  Receive Date: 20120128
  Receipt Date: 20110316
  Transmission Date: 20120608
  Serious: No
  Sender: FDA-Public Use
  Company Number: US-ABBOTT-11P-163-0711658-00

PATIENT
  Sex: Male
  Weight: 104.42 kg

DRUGS (2)
  1. LISINOPRIL [Concomitant]
     Indication: HYPERTENSION
  2. HUMIRA [Suspect]
     Indication: CROHN'S DISEASE
     Route: 058
     Dates: start: 20110301

REACTIONS (5)
  - ABDOMINAL DISTENSION [None]
  - PRURITUS [None]
  - NAUSEA [None]
  - WEIGHT INCREASED [None]
  - HEADACHE [None]
